FAERS Safety Report 21928961 (Version 1)
Quarter: 2023Q1

REPORT INFORMATION
  Report Type: Spontaneous
  Country: US (occurrence: US)
  Receive Date: 20230131
  Receipt Date: 20230131
  Transmission Date: 20230417
  Serious: No
  Sender: FDA-Public Use
  Company Number: US-APOTEX-2023AP002409

PATIENT
  Age: 34 Year
  Sex: Female

DRUGS (2)
  1. ITRACONAZOLE [Suspect]
     Active Substance: ITRACONAZOLE
     Indication: Histoplasmosis
     Dosage: 200 MILLIGRAM, Q.12H
     Route: 065
  2. ITRACONAZOLE [Suspect]
     Active Substance: ITRACONAZOLE
     Dosage: 100 MILLIGRAM, Q.12H
     Route: 065

REACTIONS (8)
  - Condition aggravated [Unknown]
  - Dyspepsia [Unknown]
  - Photophobia [Unknown]
  - Tinnitus [Unknown]
  - Chest pain [Unknown]
  - Palpitations [Unknown]
  - Nausea [Unknown]
  - Abdominal pain [Unknown]
